FAERS Safety Report 19893082 (Version 1)
Quarter: 2021Q3

REPORT INFORMATION
  Report Type: Spontaneous
  Country: FR (occurrence: FR)
  Receive Date: 20210929
  Receipt Date: 20210929
  Transmission Date: 20211014
  Serious: Yes (Hospitalization, Other)
  Sender: FDA-Public Use
  Company Number: FR-AUROBINDO-AUR-APL-2021-040436

PATIENT
  Age: 71 Year
  Sex: Female

DRUGS (11)
  1. AERIUS [Concomitant]
     Indication: ASTHMA
     Dosage: 5 MILLIGRAM, ONCE A DAY
     Route: 048
  2. VENTOLIN [Concomitant]
     Active Substance: ALBUTEROL SULFATE
     Indication: ASTHMA
     Dosage: 5 MILLIGRAM, ONCE A DAY
     Route: 055
  3. MOPRAL [Concomitant]
     Active Substance: OMEPRAZOLE
     Indication: PROPHYLAXIS AGAINST GASTROINTESTINAL ULCER
     Dosage: 20 MILLIGRAM, ONCE A DAY
     Route: 048
  4. ATROVENT [Concomitant]
     Active Substance: IPRATROPIUM BROMIDE
     Indication: ASTHMA
     Route: 055
  5. CELOCURINE [Suspect]
     Active Substance: SUCCINYLCHOLINE
     Indication: ANAESTHESIA
     Dosage: UNK
     Route: 042
     Dates: start: 20210826, end: 20210826
  6. VENTOLIN [Concomitant]
     Active Substance: ALBUTEROL SULFATE
     Indication: ASTHMA
     Dosage: UNK
     Route: 055
  7. LEVOTHYROX [Concomitant]
     Active Substance: LEVOTHYROXINE
     Indication: HYPOTHYROIDISM
     Dosage: 100 MICROGRAM, ONCE A DAY
     Route: 048
  8. LIDOCAINE. [Suspect]
     Active Substance: LIDOCAINE
     Indication: ANAESTHESIA
     Dosage: UNK
     Route: 042
     Dates: start: 20210826, end: 20210826
  9. PROPOFOL. [Suspect]
     Active Substance: PROPOFOL
     Indication: ANAESTHESIA
     Dosage: UNK
     Route: 042
     Dates: start: 20210826, end: 20210826
  10. INNOVAIR [Concomitant]
     Active Substance: BECLOMETHASONE DIPROPIONATE\FORMOTEROL
     Indication: ASTHMA
     Dosage: 2 DOSAGE FORM, ONCE A DAY
     Route: 055
  11. RHINOCORT [Concomitant]
     Active Substance: BUDESONIDE
     Indication: ASTHMA
     Dosage: 2 DOSAGE FORM, ONCE A DAY
     Route: 045

REACTIONS (1)
  - Anaphylactic shock [Recovered/Resolved]

NARRATIVE: CASE EVENT DATE: 20210826
